FAERS Safety Report 6054266-5 (Version None)
Quarter: 2009Q1

REPORT INFORMATION
  Report Type: 
  Country: None (occurrence: None)
  Receive Date: 20090127
  Receipt Date: 20081210
  Transmission Date: 20090719
  Serious: No
  Sender: FDA-Public Use
  Company Number: US-AMGEN-US323164

PATIENT
  Sex: Male

DRUGS (4)
  1. VECTIBIX [Suspect]
  2. FAMOTIDINE [Concomitant]
  3. DIPHENHYDRAMINE HCL [Concomitant]
  4. TYLENOL [Concomitant]

REACTIONS (1)
  - PYREXIA [None]
